FAERS Safety Report 21091328 (Version 1)
Quarter: 2022Q3

REPORT INFORMATION
  Report Type: Spontaneous
  Country: US (occurrence: US)
  Receive Date: 20220716
  Receipt Date: 20220716
  Transmission Date: 20221027
  Serious: Yes (Other)
  Sender: FDA-Public Use
  Company Number: US-NOVARTISTESTPH-NVSC2022US156980

PATIENT
  Sex: Female

DRUGS (4)
  1. METHOTREXATE [Suspect]
     Active Substance: METHOTREXATE
     Indication: Juvenile idiopathic arthritis
     Dosage: UNK UNK, QW (6 PILLS WEEKLY)
     Route: 048
  2. IBUPROFEN [Suspect]
     Active Substance: IBUPROFEN
     Indication: Juvenile idiopathic arthritis
     Dosage: UNK, PRN
     Route: 065
  3. PREDNISONE [Suspect]
     Active Substance: PREDNISONE
     Indication: Juvenile idiopathic arthritis
     Dosage: UNK (0.5) (TOOK 2 1/2 WHEN STARTED, THEN TAPPERED SLOWLY)
     Route: 065
  4. FOLIC ACID [Concomitant]
     Active Substance: FOLIC ACID
     Indication: Product used for unknown indication
     Dosage: UNK
     Route: 065

REACTIONS (9)
  - Hepatitis [Unknown]
  - Blindness transient [Recovered/Resolved]
  - Condition aggravated [Unknown]
  - Concomitant disease aggravated [Unknown]
  - Alopecia [Unknown]
  - Fatigue [Unknown]
  - Swelling [Unknown]
  - Arthritis [Unknown]
  - Drug ineffective [Unknown]
